FAERS Safety Report 13738548 (Version 1)
Quarter: 2017Q3

REPORT INFORMATION
  Report Type: Report from Study
  Country: US (occurrence: US)
  Receive Date: 20170710
  Receipt Date: 20170710
  Transmission Date: 20171127
  Serious: No
  Sender: FDA-Public Use
  Company Number: US-SAOL THERAPEUTICS-2017SAO00185

PATIENT
  Age: 68 Year
  Sex: Male

DRUGS (24)
  1. BUPIVACAINE. [Suspect]
     Active Substance: BUPIVACAINE
     Dosage: 11.261 MG, \DAY
     Dates: start: 20151223
  2. COMPOUNDED BACLOFEN [Suspect]
     Active Substance: BACLOFEN
     Dosage: 180.68 ?G, \DAY
     Route: 037
     Dates: start: 20151103, end: 20151223
  3. DILAUDID [Suspect]
     Active Substance: HYDROMORPHONE HYDROCHLORIDE
     Dosage: 1.3491 MG, \DAY
     Route: 037
     Dates: start: 20151103, end: 20151223
  4. CLONIDINE. [Suspect]
     Active Substance: CLONIDINE
     Dosage: 206.32 ?G, \DAY
     Dates: start: 20150914
  5. COMPOUNDED BACLOFEN [Suspect]
     Active Substance: BACLOFEN
     Dosage: 150.14 ?G, \DAY
     Dates: start: 20151223
  6. COMPOUNDED BACLOFEN [Suspect]
     Active Substance: BACLOFEN
     Dosage: 233.11 ?G, \DAY
     Dates: start: 20151223
  7. DILAUDID [Suspect]
     Active Substance: HYDROMORPHONE HYDROCHLORIDE
     Dosage: 2.2311 MG, \DAY
     Dates: start: 20151223
  8. BUPIVACAINE. [Suspect]
     Active Substance: BUPIVACAINE
     Dosage: 12.379 MG, \DAY
     Dates: start: 20150914
  9. DILAUDID [Suspect]
     Active Substance: HYDROMORPHONE HYDROCHLORIDE
     Dosage: 2.6275 MG, \DAY
     Dates: start: 20150914
  10. CLONIDINE. [Suspect]
     Active Substance: CLONIDINE
     Dosage: 278.88 ?G, \DAY
     Dates: start: 20151223
  11. DILAUDID [Suspect]
     Active Substance: HYDROMORPHONE HYDROCHLORIDE
     Dosage: 1.5014 MG, \DAY
     Dates: start: 20151223
  12. BUPIVACAINE. [Suspect]
     Active Substance: BUPIVACAINE
     Dosage: 16.733 MG, \DAY
     Dates: start: 20151223
  13. COMPOUNDED BACLOFEN [Suspect]
     Active Substance: BACLOFEN
     Dosage: 165.05 ?G, \DAY
     Route: 037
     Dates: start: 20150914
  14. COMPOUNDED BACLOFEN [Suspect]
     Active Substance: BACLOFEN
     Dosage: 134.91 ?G, \DAY
     Route: 037
     Dates: start: 20151103, end: 20151223
  15. DILAUDID [Suspect]
     Active Substance: HYDROMORPHONE HYDROCHLORIDE
     Dosage: 1.6505 MG, \DAY
     Dates: start: 20150914
  16. BUPIVACAINE. [Suspect]
     Active Substance: BUPIVACAINE
     Dosage: 10.118 MG, \DAY
     Route: 037
     Dates: start: 20151103, end: 20151223
  17. CLONIDINE. [Suspect]
     Active Substance: CLONIDINE
     Dosage: 168.63 ?G, \DAY
     Route: 037
     Dates: start: 20151103, end: 20151223
  18. COMPOUNDED BACLOFEN [Suspect]
     Active Substance: BACLOFEN
     Dosage: 262.75 ?G, \DAY
     Dates: start: 20150914
  19. DILAUDID [Suspect]
     Active Substance: HYDROMORPHONE HYDROCHLORIDE
     Dosage: 1.8068 MG, \DAY
     Route: 037
     Dates: start: 20151103, end: 20151223
  20. BUPIVACAINE. [Suspect]
     Active Substance: BUPIVACAINE
     Dosage: 19.706 MG, \DAY
     Dates: start: 20150914
  21. BUPIVACAINE. [Suspect]
     Active Substance: BUPIVACAINE
     Dosage: 13.551 MG, \DAY
     Route: 037
     Dates: start: 20151103, end: 20151223
  22. CLONIDINE. [Suspect]
     Active Substance: CLONIDINE
     Dosage: 328.44 ?G, \DAY
     Dates: start: 20150914
  23. CLONIDINE. [Suspect]
     Active Substance: CLONIDINE
     Dosage: 225.85 ?G, \DAY
     Route: 037
     Dates: start: 20151103, end: 20151223
  24. CLONIDINE. [Suspect]
     Active Substance: CLONIDINE
     Dosage: 187.68 ?G, \DAY
     Dates: start: 20151223

REACTIONS (1)
  - Implant site pain [Recovered/Resolved]

NARRATIVE: CASE EVENT DATE: 20151006
